FAERS Safety Report 9918659 (Version 3)
Quarter: 2014Q4

REPORT INFORMATION
  Report Type: Spontaneous
  Country: DE (occurrence: DE)
  Receive Date: 20140224
  Receipt Date: 20141217
  Transmission Date: 20150529
  Serious: Yes (Other)
  Sender: FDA-Public Use
  Company Number: DE-MERCK-1305DEU011068

PATIENT
  Age: 32 Year
  Sex: Female

DRUGS (4)
  1. NORVIR [Concomitant]
     Active Substance: RITONAVIR
     Indication: HIV INFECTION
     Dosage: TATOL DAILY DOSE 100 UNIT UNKNOWN, UNK
     Dates: start: 201305
  2. ISENTRESS [Suspect]
     Active Substance: RALTEGRAVIR POTASSIUM
     Indication: HIV INFECTION
     Dosage: TOTAL DAILY DOSE 800 UNIT UNKNOWN, BID
     Route: 048
     Dates: start: 201203, end: 201305
  3. TRUVADA [Concomitant]
     Active Substance: EMTRICITABINE\TENOFOVIR DISOPROXIL FUMARATE
     Indication: HIV INFECTION
     Dosage: 1 DF, QD
     Route: 048
     Dates: start: 200802
  4. REYATAZ [Concomitant]
     Active Substance: ATAZANAVIR SULFATE
     Indication: HIV INFECTION
     Dosage: TOTAL DAILY DOSE 300 UNIT UNKNOWN, UNK
     Dates: start: 201305

REACTIONS (2)
  - Caesarean section [Recovered/Resolved]
  - Exposure during pregnancy [Recovered/Resolved]

NARRATIVE: CASE EVENT DATE: 20131114
